FAERS Safety Report 15715530 (Version 4)
Quarter: 2019Q1

REPORT INFORMATION
  Report Type: Report from Study
  Country: None (occurrence: FR)
  Receive Date: 20181212
  Receipt Date: 20190206
  Transmission Date: 20190417
  Serious: No
  Sender: FDA-Public Use
  Company Number: FR-ABBVIE-18P-056-2587653-00

PATIENT
  Age: 37 Year
  Sex: Male

DRUGS (4)
  1. SERESTA [Concomitant]
     Active Substance: OXAZEPAM
     Indication: DEPRESSION
     Route: 048
     Dates: start: 201807
  2. GLECAPREVIR/PIBRENTASVIR [Suspect]
     Active Substance: GLECAPREVIR\PIBRENTASVIR
     Indication: HEPATITIS C
     Dosage: 12 WEEKS GLECAPREVIR/PIBRENTASVIR TREATMENT REGIMEN
     Route: 048
     Dates: start: 20180929, end: 20181222
  3. METHADONE [Concomitant]
     Active Substance: METHADONE HYDROCHLORIDE
     Indication: PRODUCT SUBSTITUTION
     Route: 048
     Dates: start: 201807
  4. NORSET [Concomitant]
     Active Substance: MIRTAZAPINE
     Indication: DEPRESSION
     Route: 048
     Dates: start: 201807

REACTIONS (1)
  - Peripheral swelling [Not Recovered/Not Resolved]

NARRATIVE: CASE EVENT DATE: 20181010
